FAERS Safety Report 5292923-9 (Version None)
Quarter: 2007Q2

REPORT INFORMATION
  Report Type: 
  Country: None (occurrence: None)
  Receive Date: 20070411
  Receipt Date: 20070327
  Transmission Date: 20071010
  Serious: Yes (Other)
  Sender: FDA-Public Use
  Company Number: US-JNJFOC-20070306510

PATIENT
  Age: 46 Year
  Sex: Female
  Weight: 48.99 kg

DRUGS (3)
  1. REMICADE [Suspect]
     Route: 042
  2. REMICADE [Suspect]
     Indication: COLITIS ULCERATIVE
     Route: 042
  3. PREDINISONE [Concomitant]
     Indication: COLITIS ULCERATIVE

REACTIONS (1)
  - RESORPTION BONE INCREASED [None]
